FAERS Safety Report 23729961 (Version 4)
Quarter: 2024Q4

REPORT INFORMATION
  Report Type: Report from Study
  Country: US (occurrence: US)
  Receive Date: 20240411
  Receipt Date: 20241111
  Transmission Date: 20250115
  Serious: Yes (Other)
  Sender: ABBVIE
  Company Number: US-ABBVIE-5713056

PATIENT
  Age: 42 Year
  Sex: Female

DRUGS (3)
  1. SKYRIZI [Suspect]
     Active Substance: RISANKIZUMAB-RZAA
     Indication: Psoriatic arthropathy
     Dosage: WEEK 0 FORM STRENGTH: 150 MILLIGRAM
     Route: 058
     Dates: start: 202401, end: 202401
  2. SKYRIZI [Suspect]
     Active Substance: RISANKIZUMAB-RZAA
     Indication: Psoriasis
     Dosage: WEEK 4?FORM STRENGTH: 150 MILLIGRAM
     Route: 058
     Dates: start: 20240202, end: 20240202
  3. SKYRIZI [Suspect]
     Active Substance: RISANKIZUMAB-RZAA
     Dosage: STRENGTH: 150MG/ML, WEEK 0,  THEN WEEK 4 AND EVERY 12 WEEKS THEREAFTER
     Route: 058
     Dates: start: 202409, end: 202409

REACTIONS (2)
  - Ovarian cancer [Unknown]
  - Skin disorder [Not Recovered/Not Resolved]

NARRATIVE: CASE EVENT DATE: 20240101
